FAERS Safety Report 25234775 (Version 1)
Quarter: 2025Q2

REPORT INFORMATION
  Report Type: Spontaneous
  Country: US (occurrence: US)
  Receive Date: 20250424
  Receipt Date: 20250424
  Transmission Date: 20250717
  Serious: Yes (Other)
  Sender: CURRAX PHARMACEUTICALS
  Company Number: US-CURRAX PHARMACEUTICALS LLC-US-2025CUR000848

PATIENT
  Age: 42 Year
  Sex: Female

DRUGS (1)
  1. SUMATRIPTAN SUCCINATE [Suspect]
     Active Substance: SUMATRIPTAN SUCCINATE
     Indication: Migraine
     Route: 055

REACTIONS (1)
  - Colitis ischaemic [Recovered/Resolved]
